FAERS Safety Report 9129311 (Version 1)
Quarter: 2013Q1

REPORT INFORMATION
  Report Type: Spontaneous
  Country: US (occurrence: US)
  Receive Date: 20130228
  Receipt Date: 20130228
  Transmission Date: 20140127
  Serious: No
  Sender: FDA-Public Use
  Company Number: US-VIIV HEALTHCARE LIMITED-A1000276A

PATIENT
  Sex: 0

DRUGS (1)
  1. ZIAGEN [Suspect]
     Route: 048

REACTIONS (1)
  - Diarrhoea [Unknown]
